FAERS Safety Report 7712429-4 (Version None)
Quarter: 2011Q3

REPORT INFORMATION
  Report Type: 
  Country: None (occurrence: None)
  Receive Date: 20110826
  Receipt Date: 20110822
  Transmission Date: 20111222
  Serious: Yes (Hospitalization)
  Sender: FDA-Public Use
  Company Number: AT-AMGEN-KDC407767

PATIENT
  Age: 45 Year
  Sex: Female

DRUGS (4)
  1. DOCETAXEL [Concomitant]
     Dosage: 165 MG, Q3WK
     Route: 042
     Dates: start: 20100225
  2. BEVACIZUMAB [Concomitant]
     Dosage: 915 MG, Q3WK
     Route: 042
     Dates: start: 20100225
  3. PEGFILGRASTIM [Suspect]
     Indication: PRODUCT USED FOR UNKNOWN INDICATION
     Dosage: 6 MG, QD
     Dates: start: 20100409, end: 20100409
  4. TRASTUZUMAB [Concomitant]
     Dosage: 366 MG, Q3WK
     Route: 042
     Dates: start: 20100225

REACTIONS (3)
  - DEVICE RELATED INFECTION [None]
  - BONE PAIN [None]
  - INFECTION [None]
